FAERS Safety Report 4977339-4 (Version None)
Quarter: 2006Q2

REPORT INFORMATION
  Report Type: 
  Country: None (occurrence: None)
  Receive Date: 20060419
  Receipt Date: 20060315
  Transmission Date: 20061013
  Serious: Yes (Hospitalization)
  Sender: FDA-Public Use
  Company Number: DE-MERCK-0603DEU00079

PATIENT
  Age: 64 Year
  Sex: Male
  Weight: 72 kg

DRUGS (1)
  1. VYTORIN [Suspect]
     Indication: HYPERLIPIDAEMIA
     Route: 048
     Dates: start: 20050701, end: 20060201

REACTIONS (1)
  - HEPATOCELLULAR DAMAGE [None]
